FAERS Safety Report 12504547 (Version 2)
Quarter: 2016Q3

REPORT INFORMATION
  Report Type: Spontaneous
  Country: US (occurrence: US)
  Receive Date: 20160628
  Receipt Date: 20160817
  Transmission Date: 20161109
  Serious: Yes (Hospitalization)
  Sender: FDA-Public Use
  Company Number: US-OTSUKA-2016_015161

PATIENT
  Sex: Female

DRUGS (1)
  1. ABILIFY MAINTENA [Suspect]
     Active Substance: ARIPIPRAZOLE
     Indication: PRODUCT USED FOR UNKNOWN INDICATION
     Dosage: UNK, EVERY 6 WEEKS
     Route: 030

REACTIONS (6)
  - Vision blurred [Unknown]
  - Inappropriate schedule of drug administration [Not Recovered/Not Resolved]
  - Persecutory delusion [Unknown]
  - Pyrexia [Unknown]
  - Insomnia [Unknown]
  - Hospitalisation [Recovered/Resolved]
